FAERS Safety Report 25564527 (Version 1)
Quarter: 2025Q3

REPORT INFORMATION
  Report Type: Report from Study
  Country: BR (occurrence: BR)
  Receive Date: 20250716
  Receipt Date: 20250716
  Transmission Date: 20251020
  Serious: Yes (Other)
  Sender: NOVARTIS
  Company Number: BR-002147023-NVSC2025BR078806

PATIENT
  Sex: Female

DRUGS (2)
  1. RIBOCICLIB [Suspect]
     Active Substance: RIBOCICLIB
     Indication: Product used for unknown indication
     Route: 065
     Dates: start: 20250403
  2. ANASTROZOLE [Concomitant]
     Active Substance: ANASTROZOLE
     Indication: Product used for unknown indication
     Route: 065
     Dates: start: 20250403

REACTIONS (18)
  - Hepatotoxicity [Recovering/Resolving]
  - Neutropenia [Not Recovered/Not Resolved]
  - Invasive ductal breast carcinoma [Unknown]
  - Decreased immune responsiveness [Recovering/Resolving]
  - Fatigue [Unknown]
  - Nausea [Unknown]
  - Vomiting [Recovered/Resolved]
  - Decreased appetite [Recovering/Resolving]
  - Burning sensation [Recovering/Resolving]
  - Gastrooesophageal reflux disease [Recovered/Resolved]
  - Liver function test abnormal [Recovering/Resolving]
  - Alanine aminotransferase increased [Unknown]
  - Aspartate aminotransferase increased [Unknown]
  - Malaise [Recovering/Resolving]
  - Bone lesion [Unknown]
  - Hepatic lesion [Unknown]
  - Pulmonary mass [Unknown]
  - Breast mass [Unknown]

NARRATIVE: CASE EVENT DATE: 20250101
